FAERS Safety Report 9467398 (Version 1)
Quarter: 2013Q3

REPORT INFORMATION
  Report Type: Spontaneous
  Country: US (occurrence: None)
  Receive Date: 20130819
  Receipt Date: 20130819
  Transmission Date: 20140515
  Serious: Yes (Life-Threatening, Hospitalization, Other)
  Sender: FDA-Public Use
  Company Number: None

PATIENT
  Age: 62 Year
  Sex: Female
  Weight: 59 kg

DRUGS (16)
  1. WARFARIN [Suspect]
     Indication: DEEP VEIN THROMBOSIS
     Dosage: 5 MG ON M. TU, TH, F, S. 2.5 MG W,  PRN/AS NEEDED  ORAL
     Route: 048
     Dates: start: 20130101, end: 20130809
  2. XANAX [Concomitant]
  3. AMLODIPINE [Concomitant]
  4. BUSPIRONE [Concomitant]
  5. CALCIUM +D [Concomitant]
  6. CYMBALTA [Concomitant]
  7. LEVOTHYROXINE [Concomitant]
  8. ROBAXIN [Concomitant]
  9. MS CONTIN [Concomitant]
  10. MULTIVITAMIN [Concomitant]
  11. PERCOCET [Concomitant]
  12. POTASSIUM [Concomitant]
  13. PREDNISONE [Concomitant]
  14. PREDNISONE [Concomitant]
  15. COUMADIN [Concomitant]
  16. AMBIEN [Concomitant]

REACTIONS (7)
  - Haematoma [None]
  - International normalised ratio increased [None]
  - Anaemia [None]
  - Incorrect dose administered [None]
  - Inappropriate schedule of drug administration [None]
  - Drug dose omission [None]
  - Product substitution issue [None]
